FAERS Safety Report 8925383 (Version 1)
Quarter: 2012Q4

REPORT INFORMATION
  Report Type: Report from Study
  Country: GB (occurrence: GB)
  Receive Date: 20121126
  Receipt Date: 20121126
  Transmission Date: 20130627
  Serious: Yes (Death)
  Sender: FDA-Public Use
  Company Number: GB-ROCHE-1156639

PATIENT
  Sex: Female

DRUGS (2)
  1. RITUXIMAB [Suspect]
     Indication: RHEUMATOID ARTHRITIS
     Route: 065
     Dates: start: 20090515
  2. METHOTREXATE [Concomitant]

REACTIONS (5)
  - Bronchopneumonia [Fatal]
  - Left ventricular failure [Fatal]
  - Myocardial ischaemia [Fatal]
  - Hypertension [Fatal]
  - Gastrointestinal carcinoma [Fatal]
